FAERS Safety Report 23677273 (Version 5)
Quarter: 2024Q3

REPORT INFORMATION
  Report Type: Report from Study
  Country: CN (occurrence: CN)
  Receive Date: 20240327
  Receipt Date: 20240827
  Transmission Date: 20241016
  Serious: Yes (Hospitalization, Other)
  Sender: ROCHE
  Company Number: CN-002147023-NVSC2024CN059410

PATIENT
  Age: 25 Week
  Sex: Female
  Weight: 1.0 kg

DRUGS (24)
  1. LUCENTIS [Suspect]
     Active Substance: RANIBIZUMAB
     Indication: Retinopathy of prematurity
     Dosage: 0.2 MG (OU) (VITREOUS INJECTION)
     Route: 050
     Dates: start: 20231208, end: 20231208
  2. ATROPINE SULFATE [Concomitant]
     Active Substance: ATROPINE SULFATE
     Indication: Anaesthesia
     Dosage: 0.6 MG (IMMEDIATE)
     Route: 050
     Dates: start: 20240515, end: 20240515
  3. ATROPINE SULFATE [Concomitant]
     Active Substance: ATROPINE SULFATE
     Dosage: 0.6 MG (IMMEDIATE)
     Route: 050
     Dates: start: 20240117, end: 20240117
  4. LIDOCAINE HYDROCHLORIDE [Concomitant]
     Active Substance: LIDOCAINE HYDROCHLORIDE
     Indication: Anaesthesia
     Dosage: 0.01 G (IMMEDIATE)
     Route: 050
     Dates: start: 20240515, end: 20240515
  5. LIDOCAINE HYDROCHLORIDE [Concomitant]
     Active Substance: LIDOCAINE HYDROCHLORIDE
     Dosage: 0.01 G (IMMEDIATE)
     Route: 050
     Dates: start: 20240117, end: 20240117
  6. EPINEPHRINE HYDROCHLORIDE [Concomitant]
     Active Substance: EPINEPHRINE HYDROCHLORIDE
     Indication: Anaesthesia
     Dosage: 1000 UG (IMMEDIATE, INTRAVENOUS INJECTION)
     Route: 050
     Dates: start: 20240515, end: 20240515
  7. EPINEPHRINE HYDROCHLORIDE [Concomitant]
     Active Substance: EPINEPHRINE HYDROCHLORIDE
     Dosage: 100 UG (EXTERNAL USE)
     Route: 050
     Dates: start: 20240117, end: 20240117
  8. FENTANYL CITRATE [Concomitant]
     Active Substance: FENTANYL CITRATE
     Indication: Anaesthesia
     Dosage: 10 UG (IMMEDIATE, INTRAOPERATIVE INTRAVENOUS INJECTION)
     Route: 050
     Dates: start: 20240515, end: 20240515
  9. FENTANYL CITRATE [Concomitant]
     Active Substance: FENTANYL CITRATE
     Dosage: 10 UG (IMMEDIATE, INTRAOPERATIVE INTRAVENOUS INJECTION)
     Route: 050
     Dates: start: 20231206, end: 20231206
  10. FENTANYL CITRATE [Concomitant]
     Active Substance: FENTANYL CITRATE
     Dosage: 10 UG (IMMEDIATE, INTRAOPERATIVE INTRAVENOUS INJECTION)
     Route: 050
     Dates: start: 20240117, end: 20240117
  11. PROPOFOL [Concomitant]
     Active Substance: PROPOFOL
     Indication: Anaesthesia
     Dosage: 20 MG (IMMEDIATE, INTRAOPERATIVE INTRAVENOUS INJECTION)
     Route: 050
     Dates: start: 20240515, end: 20240515
  12. PROPOFOL [Concomitant]
     Active Substance: PROPOFOL
     Dosage: 5 MG (MEDIUM/LONG CHAIN FAT EMULSION)
     Route: 050
     Dates: start: 20231208, end: 20231208
  13. PROPOFOL [Concomitant]
     Active Substance: PROPOFOL
     Dosage: 5 MG (EMULSION)
     Route: 050
     Dates: start: 20240117, end: 20240117
  14. SEVOFLURANE [Concomitant]
     Active Substance: SEVOFLURANE
     Indication: Anaesthesia
     Dosage: 12.6 ML (IMMEDIATE, INHALATION)
     Route: 050
     Dates: start: 20240515, end: 20240515
  15. SEVOFLURANE [Concomitant]
     Active Substance: SEVOFLURANE
     Dosage: 12.6 ML (IMMEDIATE, INHALATION)
     Route: 050
     Dates: start: 20231208, end: 20231208
  16. SEVOFLURANE [Concomitant]
     Active Substance: SEVOFLURANE
     Dosage: 12.6 ML (IMMEDIATE, INHALATION)
     Route: 050
     Dates: start: 20240117, end: 20240117
  17. SUCCINYLCHOLINE CHLORIDE [Concomitant]
     Active Substance: SUCCINYLCHOLINE CHLORIDE
     Indication: Anaesthesia
     Dosage: 100 MG (IMMEDIATE, INTRAOPERATIVE INTRAVENOUS INJECTION)
     Route: 050
     Dates: start: 20240515, end: 20240515
  18. MIDAZOLAM [Concomitant]
     Active Substance: MIDAZOLAM
     Indication: Anaesthesia
     Dosage: 0.5 MG (IMMEDIATE, INTRAOPERATIVE INTRAVENOUS INJECTION)
     Route: 050
     Dates: start: 20240515, end: 20240515
  19. MIDAZOLAM [Concomitant]
     Active Substance: MIDAZOLAM
     Dosage: 0.5 MG (IMMEDIATE, INTRAOPERATIVE INTRAVENOUS INJECTION)
     Route: 050
     Dates: start: 20231208, end: 20231208
  20. SODIUM FLUORESCEIN DIAGNOSTIC [Concomitant]
     Dosage: 0.05 ML (IMMEDIATELY, SKIN TEST)
     Dates: start: 20240515, end: 20240515
  21. DEXAMETHASONE SODIUM PHOSPHATE [Concomitant]
     Active Substance: DEXAMETHASONE PHOSPHATE\DEXAMETHASONE SODIUM PHOSPHATE
     Indication: Anaesthesia
     Dosage: 1 MG (IMMEDIATE, INTRAOPERATIVE INTRAVENOUS INJECTION)
     Route: 042
     Dates: start: 20231208, end: 20231208
  22. DEXAMETHASONE SODIUM PHOSPHATE [Concomitant]
     Active Substance: DEXAMETHASONE PHOSPHATE\DEXAMETHASONE SODIUM PHOSPHATE
     Dosage: 1 MG (IMMEDIATE, INTRAOPERATIVE INTRAVENOUS INJECTION)
     Route: 042
     Dates: start: 20240515, end: 20240515
  23. TOBRAMYCIN AND DEXAMETHASONE [Concomitant]
     Active Substance: DEXAMETHASONE\TOBRAMYCIN
     Indication: Infection prophylaxis
     Dosage: 1 DRP, QD (DOUBLE EYES)
     Route: 047
     Dates: start: 20240116, end: 20240116
  24. TOBRAMYCIN AND DEXAMETHASONE [Concomitant]
     Active Substance: DEXAMETHASONE\TOBRAMYCIN
     Dosage: 1 DRP, QD (DOUBLE EYES)
     Route: 065
     Dates: start: 20240515, end: 20240518

REACTIONS (7)
  - Vitreous haemorrhage [Recovered/Resolved]
  - Leukopenia [Recovered/Resolved]
  - Coagulation test abnormal [Recovered/Resolved]
  - Anaemia [Recovered/Resolved]
  - Globulins decreased [Not Recovered/Not Resolved]
  - Hepatic function abnormal [Not Recovered/Not Resolved]
  - Intraocular pressure increased [Recovered/Resolved]

NARRATIVE: CASE EVENT DATE: 20240102
